FAERS Safety Report 8598222-1 (Version None)
Quarter: 2012Q3

REPORT INFORMATION
  Report Type: 
  Country: None (occurrence: None)
  Receive Date: 20120816
  Receipt Date: 20120807
  Transmission Date: 20120928
  Serious: Yes (Hospitalization, Other)
  Sender: FDA-Public Use
  Company Number: AU-ELI_LILLY_AND_COMPANY-AU201206002426

PATIENT
  Sex: Male

DRUGS (5)
  1. ESOMEPRAZOLE [Concomitant]
     Dosage: 40 MG, UNK
     Route: 048
  2. ZYPREXA RELPREVV [Suspect]
     Indication: SCHIZOPHRENIA
     Dosage: 300 MG, UNK
  3. LITHIUM CARBONATE [Concomitant]
     Dosage: 250 MG, UNK
     Route: 048
  4. THIAMINE HCL [Concomitant]
  5. PALIPERIDONE [Concomitant]
     Dosage: 100 MG, UNK
     Route: 030

REACTIONS (6)
  - INJECTION SITE HAEMORRHAGE [None]
  - LOSS OF CONSCIOUSNESS [None]
  - HOSPITALISATION [None]
  - UNRESPONSIVE TO STIMULI [None]
  - SEDATION [None]
  - INAPPROPRIATE AFFECT [None]
